FAERS Safety Report 8018275-9 (Version None)
Quarter: 2012Q1

REPORT INFORMATION
  Report Type: 
  Country: None (occurrence: None)
  Receive Date: 20120103
  Receipt Date: 20111228
  Transmission Date: 20120608
  Serious: Yes (Hospitalization)
  Sender: FDA-Public Use
  Company Number: US-SHIONOGI, INC-2011000271

PATIENT

DRUGS (5)
  1. KAPVAY [Suspect]
     Dosage: 0.1 MG IN THE AM AND 0.1 MG AT BEDTIME VIA G-TUBE
     Dates: start: 20111201
  2. RISPERDAL [Concomitant]
     Indication: AFFECTIVE DISORDER
     Dosage: UNK
     Dates: start: 20110331
  3. LAMICTAL [Concomitant]
     Indication: AFFECTIVE DISORDER
     Dosage: UNK
     Dates: start: 20110902
  4. CLONIDINE HCL [Concomitant]
     Dosage: UNK
     Dates: start: 20110124, end: 20111014
  5. KAPVAY [Suspect]
     Dosage: 0.1 MG IN THE AM AND 0.2 MG AT BEDTIME VIA G-TUBE
     Dates: start: 20111014, end: 20111201

REACTIONS (3)
  - SEDATION [None]
  - CONVULSION [None]
  - CRYING [None]
